FAERS Safety Report 7518683-6 (Version None)
Quarter: 2011Q2

REPORT INFORMATION
  Report Type: 
  Country: None (occurrence: None)
  Receive Date: 20110601
  Receipt Date: 20110601
  Transmission Date: 20111010
  Serious: No
  Sender: FDA-Public Use
  Company Number: None

PATIENT
  Age: 41 Year
  Sex: Female
  Weight: 68.0396 kg

DRUGS (2)
  1. LAMOTRIGINE [Suspect]
     Indication: ANXIETY
     Dosage: 100 MG ONCE DAILY PO
     Route: 048
     Dates: start: 20110516, end: 20110531
  2. LAMOTRIGINE [Suspect]
     Indication: DEPRESSION
     Dosage: 100 MG ONCE DAILY PO
     Route: 048
     Dates: start: 20110516, end: 20110531

REACTIONS (6)
  - MIDDLE INSOMNIA [None]
  - ANXIETY [None]
  - DEPRESSION [None]
  - MUSCLE TIGHTNESS [None]
  - INITIAL INSOMNIA [None]
  - MUSCLE SPASMS [None]
